FAERS Safety Report 7360303-8 (Version None)
Quarter: 2011Q1

REPORT INFORMATION
  Report Type: 
  Country: None (occurrence: None)
  Receive Date: 20110318
  Receipt Date: 20110309
  Transmission Date: 20110831
  Serious: Yes (Hospitalization)
  Sender: FDA-Public Use
  Company Number: JP-JNJFOC-20110304755

PATIENT

DRUGS (1)
  1. DUROTEP MT [Suspect]
     Indication: PAIN
     Route: 062

REACTIONS (2)
  - HOSPITALISATION [None]
  - PYREXIA [None]
